FAERS Safety Report 4283834-6 (Version None)
Quarter: 2004Q1

REPORT INFORMATION
  Report Type: 
  Country: None (occurrence: None)
  Receive Date: 20040130
  Receipt Date: 20040121
  Transmission Date: 20041129
  Serious: Yes (Other)
  Sender: FDA-Public Use
  Company Number: 200410047BWH

PATIENT
  Age: 68 Year
  Sex: Male
  Weight: 106.5953 kg

DRUGS (4)
  1. LEVITRA [Suspect]
     Indication: ERECTILE DYSFUNCTION
     Dosage: 10 MG, TOTAL DAILY, ORAL
     Route: 048
     Dates: start: 20031201
  2. LIPITOR [Concomitant]
  3. PRILOSEC [Concomitant]
  4. LISINOPRIL [Concomitant]

REACTIONS (2)
  - HAEMATOSPERMIA [None]
  - URINE ABNORMALITY [None]
